FAERS Safety Report 13284400 (Version 2)
Quarter: 2017Q2

REPORT INFORMATION
  Report Type: Spontaneous
  Country: BR (occurrence: BR)
  Receive Date: 20170301
  Receipt Date: 20170407
  Transmission Date: 20170830
  Serious: Yes (Other)
  Sender: FDA-Public Use
  Company Number: BR-NOVOPROD-529656

PATIENT
  Sex: Female

DRUGS (1)
  1. LEVEMIR PENFILL [Suspect]
     Active Substance: INSULIN DETEMIR
     Indication: PRODUCT USED FOR UNKNOWN INDICATION
     Dosage: 60 IU, QD (40 IU IN THE MORNING AND 20 IU IN THE EVENING)
     Route: 065

REACTIONS (2)
  - Blood glucose fluctuation [Unknown]
  - Visual impairment [Unknown]

NARRATIVE: CASE EVENT DATE: 20161227
